FAERS Safety Report 5332128-6 (Version None)
Quarter: 2007Q2

REPORT INFORMATION
  Report Type: 
  Country: None (occurrence: None)
  Receive Date: 20070510
  Receipt Date: 20070504
  Transmission Date: 20071010
  Serious: Yes (Hospitalization)
  Sender: FDA-Public Use
  Company Number: 2007000828

PATIENT
  Age: 46 Year
  Sex: Male
  Weight: 67 kg

DRUGS (6)
  1. TARCEVA [Suspect]
     Indication: NON-SMALL CELL LUNG CANCER
     Dosage: 150 MG (QD), ORAL
     Route: 048
     Dates: start: 20060807
  2. DEXAMETHASONE TAB [Concomitant]
  3. MEGACE [Concomitant]
  4. ACCUPRIL [Concomitant]
  5. DILTIAZEM [Concomitant]
  6. RADIATION THERAPY [Concomitant]

REACTIONS (4)
  - DIARRHOEA [None]
  - HYPOAESTHESIA [None]
  - MUSCULAR WEAKNESS [None]
  - RASH [None]
